FAERS Safety Report 19710959 (Version 2)
Quarter: 2021Q3

REPORT INFORMATION
  Report Type: Report from Study
  Country: CA (occurrence: CA)
  Receive Date: 20210817
  Receipt Date: 20210824
  Transmission Date: 20211014
  Serious: Yes (Hospitalization)
  Sender: FDA-Public Use
  Company Number: NVSC2021CA179258

PATIENT
  Age: 30 Year
  Sex: Female

DRUGS (2)
  1. TOPIRAMATE. [Suspect]
     Active Substance: TOPIRAMATE
     Indication: EPILEPSY
     Dosage: UNK
     Route: 065
  2. MONTELUKAST SODIUM. [Suspect]
     Active Substance: MONTELUKAST SODIUM
     Indication: PRODUCT USED FOR UNKNOWN INDICATION
     Dosage: UNK
     Route: 065

REACTIONS (18)
  - Oropharyngeal pain [Unknown]
  - Chest discomfort [Unknown]
  - Wheezing [Unknown]
  - Nasal mucosal disorder [Unknown]
  - Gastrooesophageal reflux disease [Unknown]
  - Pleuritic pain [Unknown]
  - Pain [Unknown]
  - Dyspnoea exertional [Unknown]
  - Rhinorrhoea [Unknown]
  - Asthma [Recovering/Resolving]
  - Dyspnoea [Unknown]
  - Rhinitis [Unknown]
  - Bronchitis [Unknown]
  - Cough [Unknown]
  - White blood cell count increased [Unknown]
  - Rhinitis allergic [Unknown]
  - Nasal congestion [Unknown]
  - Productive cough [Unknown]

NARRATIVE: CASE EVENT DATE: 20191003
